FAERS Safety Report 17908635 (Version 5)
Quarter: 2020Q4

REPORT INFORMATION
  Report Type: Report from Study
  Country: JP (occurrence: JP)
  Receive Date: 20200617
  Receipt Date: 20201202
  Transmission Date: 20210113
  Serious: Yes (Hospitalization)
  Sender: FDA-Public Use
  Company Number: JP-PFIZER INC-2020-07515

PATIENT
  Age: 57 Year
  Sex: Male
  Weight: 63.7 kg

DRUGS (5)
  1. BRAFTOVI [Suspect]
     Active Substance: ENCORAFENIB
     Indication: MALIGNANT MELANOMA
     Dosage: 450 MG
     Route: 048
     Dates: start: 20200225
  2. MEKTOVI [Suspect]
     Active Substance: BINIMETINIB
     Indication: MALIGNANT MELANOMA
     Dosage: 90 MG
     Route: 048
     Dates: start: 20200225
  3. OPDIVO [Suspect]
     Active Substance: NIVOLUMAB
     Indication: MALIGNANT MELANOMA
     Dosage: UNK
     Route: 041
     Dates: start: 20200217
  4. BRAFTOVI [Suspect]
     Active Substance: ENCORAFENIB
     Dosage: 450 MG
     Route: 048
     Dates: start: 20200313, end: 20200627
  5. MEKTOVI [Suspect]
     Active Substance: BINIMETINIB
     Dosage: 90 MG
     Route: 048
     Dates: start: 20200313, end: 20200627

REACTIONS (2)
  - Abdominal pain [Recovered/Resolved]
  - Diarrhoea [Recovered/Resolved]

NARRATIVE: CASE EVENT DATE: 20200302
